FAERS Safety Report 5262145-6 (Version None)
Quarter: 2007Q1

REPORT INFORMATION
  Report Type: 
  Country: None (occurrence: None)
  Receive Date: 20070311
  Receipt Date: 20070228
  Transmission Date: 20070707
  Serious: Yes (Hospitalization)
  Sender: FDA-Public Use
  Company Number: 2006UW21816

PATIENT
  Sex: Female
  Weight: 81.8 kg

DRUGS (3)
  1. SEROQUEL [Suspect]
     Indication: BIPOLAR DISORDER
     Route: 048
     Dates: start: 20041104
  2. ZOLOFT [Concomitant]
     Indication: PANIC ATTACK
  3. ABILIFY [Concomitant]

REACTIONS (3)
  - DIABETES MELLITUS [None]
  - JOINT SPRAIN [None]
  - SURGERY [None]
